FAERS Safety Report 12345437 (Version 1)
Quarter: 2016Q2

REPORT INFORMATION
  Report Type: Spontaneous
  Country: GB (occurrence: GB)
  Receive Date: 20160508
  Receipt Date: 20160508
  Transmission Date: 20160815
  Serious: Yes (Disabling)
  Sender: FDA-Public Use
  Company Number: GB-009507513-1605GBR003280

PATIENT
  Age: 69 Year
  Sex: Male
  Weight: 184 kg

DRUGS (8)
  1. BISOPROLOL [Concomitant]
     Active Substance: BISOPROLOL
     Dosage: STOPPED
  2. TRAMADOL HYDROCHLORIDE. [Concomitant]
     Active Substance: TRAMADOL HYDROCHLORIDE
     Dosage: ONGOING
  3. SIMVASTATIN. [Suspect]
     Active Substance: SIMVASTATIN
     Indication: ACUTE CORONARY SYNDROME
     Dosage: INITIALLY 20MG ONCE A DAY AT NIGHT THEN 40MG ONCE A DAY AT NIGHT
     Route: 048
     Dates: start: 20131230, end: 20160330
  4. NICORANDIL [Concomitant]
     Active Substance: NICORANDIL
     Dosage: STOPPED - NOT NEEDED
  5. WARFARIN [Concomitant]
     Active Substance: WARFARIN
     Dosage: ONGOING
  6. ATENOLOL. [Concomitant]
     Active Substance: ATENOLOL
     Dosage: STOPPED
  7. LERCANIDIPINE [Concomitant]
     Active Substance: LERCANIDIPINE
     Dosage: ONGOING
  8. QUININE [Concomitant]
     Active Substance: QUININE
     Dosage: ONGOING

REACTIONS (1)
  - Peripheral sensorimotor neuropathy [Recovering/Resolving]
